FAERS Safety Report 4315979-6 (Version None)
Quarter: 2004Q1

REPORT INFORMATION
  Report Type: 
  Country: None (occurrence: None)
  Receive Date: 20040310
  Receipt Date: 20040301
  Transmission Date: 20041129
  Serious: Yes (Hospitalization)
  Sender: FDA-Public Use
  Company Number: 2004201789IL

PATIENT
  Age: 30 Year
  Sex: Female

DRUGS (3)
  1. DOSTINEX [Suspect]
     Indication: LACTATION DISORDER
     Dosage: SINGLE DOSE, UNK
  2. OPTALGIN (METAMIZOLE SODIUM) [Concomitant]
  3. CEPHALEXIN [Concomitant]

REACTIONS (1)
  - RENAL FAILURE ACUTE [None]
